FAERS Safety Report 16970937 (Version 1)
Quarter: 2019Q4

REPORT INFORMATION
  Report Type: Spontaneous
  Country: GB (occurrence: GB)
  Receive Date: 20191029
  Receipt Date: 20191029
  Transmission Date: 20200122
  Serious: Yes (Other)
  Sender: FDA-Public Use
  Company Number: GB-JNJFOC-20191035294

PATIENT
  Age: 48 Year
  Sex: Male
  Weight: 96 kg

DRUGS (9)
  1. MORPHINE SULFATE. [Concomitant]
     Active Substance: MORPHINE SULFATE
     Indication: PAIN
     Dosage: ;TAKE 5ML TO 10ML EVERY 4 HOURS () ; AS NECESSARY
     Dates: start: 20190919
  2. LANSOPRAZOLE. [Concomitant]
     Active Substance: LANSOPRAZOLE
     Dosage: 1 DF, UNK
     Dates: start: 20180323
  3. APIXABAN [Concomitant]
     Active Substance: APIXABAN
     Indication: THROMBOSIS PROPHYLAXIS
     Dosage: 2 DF, UNK
     Dates: start: 20190927
  4. RIVAROXABAN [Suspect]
     Active Substance: RIVAROXABAN
     Indication: PRODUCT USED FOR UNKNOWN INDICATION
     Dosage: 40 MG, UNK
     Route: 048
     Dates: start: 20190816
  5. LEVOTHYROXINE. [Concomitant]
     Active Substance: LEVOTHYROXINE
     Dosage: 2 DF, UNK
     Dates: start: 20170728
  6. GABAPENTIN. [Concomitant]
     Active Substance: GABAPENTIN
     Dosage: 9 DF, UNK
     Dates: start: 20170728
  7. NAPROXEN. [Concomitant]
     Active Substance: NAPROXEN
     Dosage: 2 DF, UNK
     Dates: start: 20170728, end: 20190813
  8. TRAMADOL. [Concomitant]
     Active Substance: TRAMADOL
     Dosage: 2 TO BE TAKEN FOUR TIMES A DAY. ; AS NECESSARY
     Dates: start: 20170728
  9. BETAMETHASONE VALERATE. [Concomitant]
     Active Substance: BETAMETHASONE VALERATE
     Dosage: THINLY TO THE AFFECTED AREA(S) ONCE OR TWICE
     Route: 061
     Dates: start: 20190820, end: 20190917

REACTIONS (2)
  - Rash macular [Recovered/Resolved]
  - Bronchospasm [Recovered/Resolved]

NARRATIVE: CASE EVENT DATE: 20190927
